FAERS Safety Report 7867170-4 (Version None)
Quarter: 2011Q4

REPORT INFORMATION
  Report Type: 
  Country: None (occurrence: None)
  Receive Date: 20111028
  Receipt Date: 20111021
  Transmission Date: 20120403
  Serious: Yes (Hospitalization)
  Sender: FDA-Public Use
  Company Number: CA-GLAXOSMITHKLINE-A0884618A

PATIENT
  Sex: Female

DRUGS (3)
  1. XELODA [Suspect]
     Indication: PRODUCT USED FOR UNKNOWN INDICATION
     Route: 065
  2. LEVOFLOXACIN [Concomitant]
     Route: 065
  3. TYKERB [Suspect]
     Indication: BREAST CANCER METASTATIC
     Dosage: 1250MG PER DAY
     Route: 048
     Dates: start: 20100812, end: 20111017

REACTIONS (6)
  - NEOPLASM MALIGNANT [None]
  - DIARRHOEA [None]
  - WHITE BLOOD CELL COUNT DECREASED [None]
  - LOCALISED INFECTION [None]
  - PYREXIA [None]
  - ADVERSE DRUG REACTION [None]
